FAERS Safety Report 12555142 (Version 4)
Quarter: 2017Q2

REPORT INFORMATION
  Report Type: Spontaneous
  Country: US (occurrence: US)
  Receive Date: 20160714
  Receipt Date: 20170621
  Transmission Date: 20170830
  Serious: Yes (Hospitalization)
  Sender: FDA-Public Use
  Company Number: US-ROCHE-1793268

PATIENT
  Age: 54 Year
  Sex: Female

DRUGS (4)
  1. ERIVEDGE [Suspect]
     Active Substance: VISMODEGIB
     Route: 048
     Dates: start: 20160121
  2. ERIVEDGE [Suspect]
     Active Substance: VISMODEGIB
     Indication: NASAL CAVITY CANCER
     Route: 048
     Dates: start: 20151231
  3. ASPIRIN. [Concomitant]
     Active Substance: ASPIRIN
     Indication: PRODUCT USED FOR UNKNOWN INDICATION
     Route: 048
  4. IMDUR [Concomitant]
     Active Substance: ISOSORBIDE MONONITRATE
     Indication: PRODUCT USED FOR UNKNOWN INDICATION
     Dosage: FREQUENCY UNKNOWN
     Route: 048

REACTIONS (8)
  - Ulcer [Unknown]
  - Alopecia [Not Recovered/Not Resolved]
  - Intestinal obstruction [Unknown]
  - Muscle spasms [Unknown]
  - Dry skin [Unknown]
  - Bronchitis [Unknown]
  - Alopecia [Not Recovered/Not Resolved]
  - Muscle spasms [Not Recovered/Not Resolved]

NARRATIVE: CASE EVENT DATE: 20160708
